FAERS Safety Report 4756092-3 (Version None)
Quarter: 2005Q3

REPORT INFORMATION
  Report Type: 
  Country: None (occurrence: None)
  Receive Date: 20050826
  Receipt Date: 20041221
  Transmission Date: 20060218
  Serious: Yes (Death)
  Sender: FDA-Public Use
  Company Number: USA-2004-0018125

PATIENT
  Age: 49 Year
  Sex: Male

DRUGS (4)
  1. OXYCODONE HCL [Suspect]
     Dosage: ORAL
     Route: 048
  2. ATIVAN [Suspect]
     Dosage: ORAL
     Route: 048
  3. ACETAMINOPHEN [Suspect]
     Dosage: ORAL
     Route: 048
  4. ALCOHOL (ETHANOL) [Suspect]
     Dosage: ORAL
     Route: 048

REACTIONS (1)
  - ACCIDENTAL OVERDOSE [None]
